FAERS Safety Report 10253769 (Version 2)
Quarter: 2014Q2

REPORT INFORMATION
  Report Type: Spontaneous
  Country: US (occurrence: US)
  Receive Date: 20140623
  Receipt Date: 20140623
  Transmission Date: 20141212
  Serious: Yes (Hospitalization, Other)
  Sender: FDA-Public Use
  Company Number: US-US-EMD SERONO, INC.-232597J10USA

PATIENT
  Age: 50 Year
  Sex: Male
  Weight: 63 kg

DRUGS (8)
  1. REBIF [Suspect]
     Indication: MULTIPLE SCLEROSIS
     Route: 058
     Dates: start: 20050830, end: 2010
  2. REBIF [Suspect]
     Route: 058
     Dates: start: 201002, end: 201212
  3. CYMBALTA [Concomitant]
     Indication: DEPRESSION
     Route: 065
     Dates: start: 20070831
  4. NUVIGIL [Concomitant]
     Indication: FEELING ABNORMAL
     Route: 065
  5. VITAMINS [Concomitant]
     Indication: VITAMIN SUPPLEMENTATION
  6. ARICEPT SR [Concomitant]
     Route: 065
     Dates: start: 20080608, end: 20090324
  7. BACLOFEN [Concomitant]
     Dates: start: 20090721
  8. ANDROGEL [Concomitant]
     Route: 065
     Dates: start: 20100106

REACTIONS (6)
  - Colon cancer [Not Recovered/Not Resolved]
  - Metastases to lung [Unknown]
  - Abscess [Recovered/Resolved]
  - Rectal cancer [Recovering/Resolving]
  - Diverticulum [Recovered/Resolved]
  - Nausea [Not Recovered/Not Resolved]
